FAERS Safety Report 17219485 (Version 1)
Quarter: 2019Q4

REPORT INFORMATION
  Report Type: Spontaneous
  Country: US (occurrence: US)
  Receive Date: 20191209
  Receipt Date: 20191209
  Transmission Date: 20200122
  Serious: No
  Sender: FDA-Public Use
  Company Number: None

PATIENT
  Age: 82 Year
  Sex: Male

DRUGS (4)
  1. ABIRATERONE 250MG TAB [Suspect]
     Active Substance: ABIRATERONE
     Route: 048
     Dates: start: 20191105, end: 20191205
  2. GABAPENTIN. [Concomitant]
     Active Substance: GABAPENTIN
  3. BUMETANIDE. [Concomitant]
     Active Substance: BUMETANIDE
  4. ELIQUIS [Concomitant]
     Active Substance: APIXABAN

REACTIONS (2)
  - Prostatic specific antigen increased [None]
  - Therapy change [None]

NARRATIVE: CASE EVENT DATE: 20191205
